FAERS Safety Report 11915960 (Version 4)
Quarter: 2016Q2

REPORT INFORMATION
  Report Type: Report from Study
  Country: BR (occurrence: BR)
  Receive Date: 20160114
  Receipt Date: 20160512
  Transmission Date: 20160815
  Serious: Yes (Other)
  Sender: FDA-Public Use
  Company Number: PHHY2015BR112160

PATIENT
  Age: 71 Year
  Sex: Female
  Weight: 59.7 kg

DRUGS (4)
  1. IMATINIB [Suspect]
     Active Substance: IMATINIB
     Indication: CHRONIC MYELOID LEUKAEMIA
     Dosage: 1 DF OF 200 MG, QD
     Route: 048
     Dates: start: 201411, end: 201501
  2. INDAP [Concomitant]
     Indication: PRODUCT USED FOR UNKNOWN INDICATION
     Dosage: 1 DF, QD
     Route: 048
  3. VONAU [Concomitant]
     Active Substance: ONDANSETRON HYDROCHLORIDE
     Indication: PRODUCT USED FOR UNKNOWN INDICATION
     Dosage: 8 MG, UNK
     Route: 065
  4. TASIGNA [Suspect]
     Active Substance: NILOTINIB
     Indication: CHRONIC MYELOID LEUKAEMIA
     Dosage: 2 DF, BID (2 IN THE MORNING AND 2 AT NIGHT)
     Route: 048
     Dates: start: 201502

REACTIONS (24)
  - Eating disorder [Unknown]
  - Tongue discolouration [Unknown]
  - Dehydration [Unknown]
  - Skin lesion [Recovering/Resolving]
  - Weight decreased [Not Recovered/Not Resolved]
  - Asthenia [Recovering/Resolving]
  - Abdominal distension [Unknown]
  - Hypertension [Unknown]
  - Hair disorder [Recovered/Resolved]
  - Rash generalised [Recovering/Resolving]
  - Angioedema [Unknown]
  - Oral mucosal erythema [Recovering/Resolving]
  - Hypotension [Recovered/Resolved]
  - Blood glucose increased [Recovered/Resolved]
  - Miliaria [Recovered/Resolved]
  - Tongue disorder [Unknown]
  - Glossodynia [Unknown]
  - General physical condition abnormal [Unknown]
  - Malaise [Recovering/Resolving]
  - Flatulence [Recovering/Resolving]
  - Gastrointestinal disorder [Recovering/Resolving]
  - Sensitivity of teeth [Unknown]
  - Vomiting [Unknown]
  - Abdominal discomfort [Recovering/Resolving]

NARRATIVE: CASE EVENT DATE: 201502
